FAERS Safety Report 4577191-5 (Version None)
Quarter: 2005Q1

REPORT INFORMATION
  Report Type: 
  Country: None (occurrence: None)
  Receive Date: 20050207
  Receipt Date: 20040928
  Transmission Date: 20050727
  Serious: Yes (Death)
  Sender: FDA-Public Use
  Company Number: WAES 0501USA04341

PATIENT
  Age: 70 Year
  Sex: Female

DRUGS (5)
  1. COZAAR [Suspect]
     Indication: HYPERTENSION
     Dosage: 50 MG/DAILY
     Route: 048
     Dates: start: 20020206, end: 20031018
  2. ASPIRIN [Concomitant]
  3. ROCALTROL [Concomitant]
  4. SERMION [Concomitant]
  5. MENATRETRENONE [Concomitant]

REACTIONS (1)
  - DEATH [None]
